FAERS Safety Report 22849056 (Version 2)
Quarter: 2024Q3

REPORT INFORMATION
  Report Type: Report from Study
  Country: US (occurrence: US)
  Receive Date: 20230822
  Receipt Date: 20240808
  Transmission Date: 20241017
  Serious: No
  Sender: SANOFI AVENTIS
  Company Number: US-SA-SAC20230818000083

PATIENT
  Age: 37 Year
  Sex: Male

DRUGS (4)
  1. DUPIXENT [Suspect]
     Active Substance: DUPILUMAB
     Indication: Dermatitis atopic
     Dosage: 300 MG, QOW
     Route: 058
     Dates: start: 20191012
  2. JAPANESE ENCEPHALITIS VIRUS VACCINE INACTIVATED [Suspect]
     Active Substance: JAPANESE ENCEPHALITIS VIRUS STRAIN NAKAYAMA-NIH ANTIGEN (FORMALDEHYDE INACTIVATED)
     Indication: Immunisation
     Route: 065
     Dates: start: 20240731
  3. YELLOW FEVER VACCINE NOS [Suspect]
     Active Substance: YELLOW FEVER VIRUS STRAIN 17D-204 LIVE ANTIGEN
     Indication: Immunisation
     Route: 065
     Dates: start: 20240731
  4. TYPHOID VACCINE [Suspect]
     Active Substance: TYPHOID VACCINE
     Indication: Immunisation
     Route: 065
     Dates: start: 20240731

REACTIONS (3)
  - Herpes zoster [Recovered/Resolved]
  - Contraindicated product administered [Unknown]
  - Intentional product misuse [Unknown]

NARRATIVE: CASE EVENT DATE: 20190101
